FAERS Safety Report 8027769-1 (Version None)
Quarter: 2012Q1

REPORT INFORMATION
  Report Type: 
  Country: None (occurrence: None)
  Receive Date: 20120106
  Receipt Date: 20120106
  Transmission Date: 20120608
  Serious: Yes (Other)
  Sender: FDA-Public Use
  Company Number: None

PATIENT
  Age: 58 Year
  Sex: Male
  Weight: 83.914 kg

DRUGS (1)
  1. CHERATUSSIN AC [Suspect]
     Indication: BRONCHITIS
     Dosage: 2 TEASPOONFULS
     Route: 048

REACTIONS (3)
  - DRUG INEFFECTIVE [None]
  - SOMNOLENCE [None]
  - PRODUCT PHYSICAL ISSUE [None]
